FAERS Safety Report 22523663 (Version 1)
Quarter: 2023Q2

REPORT INFORMATION
  Report Type: Report from Study
  Country: EG (occurrence: EG)
  Receive Date: 20230606
  Receipt Date: 20230606
  Transmission Date: 20230721
  Serious: Yes (Other)
  Sender: FDA-Public Use
  Company Number: EG-002147023-NVSC2022EG303948

PATIENT
  Sex: Male

DRUGS (7)
  1. GILENYA [Suspect]
     Active Substance: FINGOLIMOD HYDROCHLORIDE
     Indication: Multiple sclerosis
     Dosage: 0.5 MG, QD
     Route: 048
     Dates: start: 202003, end: 2022
  2. CLOPEX [Concomitant]
     Indication: Anticoagulant therapy
     Dosage: 1 DOSAGE FORM, QD
     Route: 048
     Dates: start: 2020
  3. PLAVIX [Concomitant]
     Active Substance: CLOPIDOGREL BISULFATE
     Indication: Anticoagulant therapy
     Dosage: 1 DOSAGE FORM, QD
     Route: 048
     Dates: start: 2016, end: 2020
  4. .ALPHA.-LIPOIC ACID [Concomitant]
     Active Substance: .ALPHA.-LIPOIC ACID
     Indication: Neuritis
     Dosage: 2 DOSAGE FORM, QD
     Route: 048
     Dates: start: 2016, end: 2020
  5. RAMIXOLE [Concomitant]
     Indication: Gait disturbance
     Dosage: 1 DOSAGE FORM, QD
     Route: 048
     Dates: start: 202303
  6. SOLUPRED [Concomitant]
     Indication: Gait disturbance
     Dosage: 1 DOSAGE FORM, QD (TOOK IT FOR TWO MONTHS)
     Route: 048
     Dates: start: 2020, end: 2020
  7. MIXTARD HUMAN 70/30 [Concomitant]
     Active Substance: INSULIN HUMAN
     Indication: Diabetes mellitus
     Dosage: 50 UNIT, QD
     Route: 058
     Dates: start: 2016

REACTIONS (7)
  - Multiple sclerosis [Unknown]
  - Seizure [Not Recovered/Not Resolved]
  - Concomitant disease aggravated [Not Recovered/Not Resolved]
  - Neuralgia [Not Recovered/Not Resolved]
  - Diabetes mellitus [Not Recovered/Not Resolved]
  - White blood cell disorder [Unknown]
  - Drug ineffective [Unknown]

NARRATIVE: CASE EVENT DATE: 20200101
